FAERS Safety Report 11092649 (Version 1)
Quarter: 2015Q2

REPORT INFORMATION
  Report Type: Spontaneous
  Country: US (occurrence: None)
  Receive Date: 20150505
  Receipt Date: 20150505
  Transmission Date: 20150821
  Serious: Yes (Disabling, Other)
  Sender: FDA-Public Use
  Company Number: None

PATIENT
  Age: 35 Year
  Sex: Male
  Weight: 95.71 kg

DRUGS (9)
  1. SERTRALINE [Suspect]
     Active Substance: SERTRALINE HYDROCHLORIDE
     Indication: ANXIETY
     Route: 048
     Dates: start: 20140827, end: 20150424
  2. SERTRALINE [Suspect]
     Active Substance: SERTRALINE HYDROCHLORIDE
     Indication: PANIC ATTACK
     Route: 048
     Dates: start: 20140827, end: 20150424
  3. TRAMADOL [Concomitant]
     Active Substance: TRAMADOL
  4. GABAPENTIN. [Concomitant]
     Active Substance: GABAPENTIN
  5. COREG [Concomitant]
     Active Substance: CARVEDILOL
  6. BENADRYL [Concomitant]
     Active Substance: DIPHENHYDRAMINE HYDROCHLORIDE
  7. WELLBUTRIN [Concomitant]
     Active Substance: BUPROPION HYDROCHLORIDE
  8. FLONASE [Concomitant]
     Active Substance: FLUTICASONE PROPIONATE
  9. ONE A DAY MEN^S MULTIVITAMIN [Concomitant]

REACTIONS (18)
  - Abnormal dreams [None]
  - Dizziness [None]
  - Obsessive thoughts [None]
  - Diarrhoea [None]
  - Malaise [None]
  - Fatigue [None]
  - Asthenia [None]
  - Feeling abnormal [None]
  - Chills [None]
  - Abdominal pain upper [None]
  - Tinnitus [None]
  - Night sweats [None]
  - Depression [None]
  - Chest pain [None]
  - Drug withdrawal syndrome [None]
  - Unevaluable event [None]
  - Headache [None]
  - Lethargy [None]
